FAERS Safety Report 7545899-5 (Version None)
Quarter: 2011Q2

REPORT INFORMATION
  Report Type: 
  Country: None (occurrence: None)
  Receive Date: 20110614
  Receipt Date: 20110531
  Transmission Date: 20111010
  Serious: Yes (Hospitalization, Other)
  Sender: FDA-Public Use
  Company Number: DE-AMGEN-DEUSP2011028945

PATIENT
  Age: 56 Year
  Sex: Male
  Weight: 73 kg

DRUGS (2)
  1. ENBREL [Suspect]
     Indication: PSORIATIC ARTHROPATHY
     Dosage: 50 MG, EVERY TEN DAYS
     Route: 058
     Dates: start: 20101101, end: 20110501
  2. ENBREL [Suspect]
     Indication: PSORIASIS
     Dosage: 50 MG, ONCE WEEKLY
     Route: 058
     Dates: start: 20090301, end: 20101001

REACTIONS (4)
  - ABDOMINAL PAIN UPPER [None]
  - YELLOW SKIN [None]
  - WEIGHT DECREASED [None]
  - PORTAL VEIN THROMBOSIS [None]
